FAERS Safety Report 10381741 (Version 1)
Quarter: 2014Q3

REPORT INFORMATION
  Report Type: Spontaneous
  Country: US (occurrence: US)
  Receive Date: 20140813
  Receipt Date: 20140813
  Transmission Date: 20150326
  Serious: Yes (Other)
  Sender: FDA-Public Use
  Company Number: US-BAYER-2014-117372

PATIENT
  Age: 31 Year
  Sex: Female

DRUGS (1)
  1. MIRENA [Suspect]
     Active Substance: LEVONORGESTREL
     Indication: CONTRACEPTION
     Dosage: 20 MCG/24HR, CONT
     Route: 015
     Dates: start: 20130829, end: 20140804

REACTIONS (4)
  - Device expulsion [Recovered/Resolved]
  - Genital haemorrhage [None]
  - Amenorrhoea [None]
  - Metrorrhagia [None]

NARRATIVE: CASE EVENT DATE: 201402
